FAERS Safety Report 7155551-6 (Version None)
Quarter: 2010Q4

REPORT INFORMATION
  Report Type: 
  Country: None (occurrence: None)
  Receive Date: 20101214
  Receipt Date: 20091116
  Transmission Date: 20110411
  Serious: No
  Sender: FDA-Public Use
  Company Number: US-AMGEN-KDL374951

PATIENT

DRUGS (10)
  1. ENBREL [Suspect]
     Indication: RHEUMATOID ARTHRITIS
     Dosage: 50 MG, QWK
     Route: 058
     Dates: start: 20090812
  2. PREDNISONE [Concomitant]
     Dosage: 5 MG, QD
     Route: 048
     Dates: start: 20090812
  3. LEVOTHYROXINE SODIUM [Concomitant]
     Dosage: 88 A?G, QD
     Route: 048
     Dates: start: 20090708
  4. SULTOPRIDE [Concomitant]
     Dosage: 11 MG, QD
     Route: 048
     Dates: start: 20080905
  5. MELATONIN [Concomitant]
     Dosage: 3 MG, UNK
     Route: 048
     Dates: start: 20070831
  6. MULTI-VITAMINS [Concomitant]
     Dosage: UNK UNK, QD
     Route: 048
     Dates: start: 20070712
  7. CALCIUM CARBONATE [Concomitant]
     Dosage: 500 MG, BID
     Route: 048
     Dates: start: 20070712
  8. LISINOPRIL [Concomitant]
     Dosage: 10 MG, QD
     Route: 048
     Dates: start: 20061019
  9. ACETAMINOPHEN [Concomitant]
     Dosage: UNK UNK, UNK
     Route: 048
  10. TRAMADOL HYDROCHLORIDE [Concomitant]
     Dosage: 50 MG, Q6H
     Route: 048
     Dates: start: 20090626

REACTIONS (1)
  - RHEUMATOID ARTHRITIS [None]
